FAERS Safety Report 5583108-7 (Version None)
Quarter: 2008Q1

REPORT INFORMATION
  Report Type: 
  Country: None (occurrence: None)
  Receive Date: 20080107
  Receipt Date: 20071224
  Transmission Date: 20080703
  Serious: Yes (Congenital Anomaly)
  Sender: FDA-Public Use
  Company Number: ZA-KINGPHARMUSA00001-K200701646

PATIENT

DRUGS (8)
  1. SEPTRA [Suspect]
  2. ISONIAZID [Suspect]
  3. RIFAMPICIN [Suspect]
  4. PYRAZINAMIDE [Suspect]
  5. ETHAMBUTOL HYDROCHLORIDE [Suspect]
  6. STAVUDINE [Suspect]
  7. LAMIVUDINE [Suspect]
  8. NEVIRAPINE [Suspect]

REACTIONS (2)
  - DANDY-WALKER SYNDROME [None]
  - DRUG EXPOSURE DURING PREGNANCY [None]
